FAERS Safety Report 9392815 (Version 1)
Quarter: 2013Q3

REPORT INFORMATION
  Report Type: Spontaneous
  Country: US (occurrence: US)
  Receive Date: 20130710
  Receipt Date: 20130710
  Transmission Date: 20140515
  Serious: Yes (Other)
  Sender: FDA-Public Use
  Company Number: US-TEVA-417660USA

PATIENT
  Sex: Male

DRUGS (3)
  1. COPAXONE [Suspect]
     Indication: RELAPSING-REMITTING MULTIPLE SCLEROSIS
     Dates: start: 20110703, end: 20130703
  2. CRESTOR [Concomitant]
     Route: 048
  3. EPIPEN [Concomitant]
     Route: 030

REACTIONS (3)
  - Throat tightness [Recovered/Resolved]
  - Urticaria [Not Recovered/Not Resolved]
  - Eye disorder [Recovered/Resolved]
